FAERS Safety Report 23498458 (Version 1)
Quarter: 2024Q1

REPORT INFORMATION
  Report Type: Spontaneous
  Country: US (occurrence: US)
  Receive Date: 20240207
  Receipt Date: 20240207
  Transmission Date: 20240410
  Serious: No
  Sender: FDA-Public Use
  Company Number: US-Blueprint Medicines Corporation-SP-US-2024-000251

PATIENT

DRUGS (2)
  1. AYVAKIT [Suspect]
     Active Substance: AVAPRITINIB
     Indication: Indolent systemic mastocytosis
     Route: 065
  2. AYVAKIT [Suspect]
     Active Substance: AVAPRITINIB
     Route: 065
     Dates: end: 20240108

REACTIONS (10)
  - Diarrhoea [Unknown]
  - Abdominal discomfort [Unknown]
  - Tryptase increased [Unknown]
  - Symptom recurrence [Unknown]
  - Flushing [Unknown]
  - Sinusitis [Unknown]
  - Brain fog [Unknown]
  - Memory impairment [Unknown]
  - Cognitive disorder [Unknown]
  - Drug ineffective [Unknown]
